FAERS Safety Report 23367089 (Version 1)
Quarter: 2024Q1

REPORT INFORMATION
  Report Type: Spontaneous
  Country: US (occurrence: None)
  Receive Date: 20240104
  Receipt Date: 20240104
  Transmission Date: 20240410
  Serious: No
  Sender: FDA-Public Use
  Company Number: None

PATIENT
  Age: 76 Year
  Sex: Male

DRUGS (1)
  1. ADEMPAS [Suspect]
     Active Substance: RIOCIGUAT
     Indication: Pulmonary hypertension
     Dosage: OTHER QUANTITY : 2.5MG;?FREQUENCY : TWICE A DAY;?
     Route: 048
     Dates: start: 20220829

REACTIONS (2)
  - SARS-CoV-2 test positive [None]
  - Cough [None]

NARRATIVE: CASE EVENT DATE: 20231231
